FAERS Safety Report 9381465 (Version 2)
Quarter: 2013Q3

REPORT INFORMATION
  Report Type: Report from Study
  Country: US (occurrence: US)
  Receive Date: 20130703
  Receipt Date: 20130801
  Transmission Date: 20140515
  Serious: Yes (Hospitalization)
  Sender: FDA-Public Use
  Company Number: PHEH2013US013779

PATIENT
  Age: 59 Year
  Sex: Female
  Weight: 40.36 kg

DRUGS (16)
  1. AFINITOR [Suspect]
     Indication: PANCREATIC CARCINOMA
     Dosage: 10 MG, DAILY
     Route: 048
  2. AFINITOR [Suspect]
     Dosage: 5 MG, DAILY
     Route: 048
  3. AFINITOR [Suspect]
     Dosage: 7.5 MG, EVERY DAY (ONE 5 MG AND ONE 2.5 MG TABLET)
     Route: 048
  4. PANTOPRAZOLE [Concomitant]
     Dosage: 20 MG, UNK
  5. BUSPIRONE [Concomitant]
     Dosage: 10 MG, UNK
  6. LORAZEPAM [Concomitant]
     Dosage: 0.5 MG, UNK
  7. FENTANYL [Concomitant]
     Dosage: 100 UG/HR, UNK
  8. FLUDROCORT [Concomitant]
     Dosage: 0.1 MG, UNK
  9. DIAZEPAM [Concomitant]
     Dosage: 2 MG, UNK
  10. METOPROLOL [Concomitant]
     Dosage: 25 MG, UNK
  11. HYDROCODONE/APAP [Concomitant]
  12. OSCAL 500+D [Concomitant]
  13. SENNA [Concomitant]
     Dosage: 8.6 MG, UNK
  14. VITAMIN D [Concomitant]
     Dosage: 1000 U, UNK
  15. FERROUS SULFATE [Concomitant]
  16. XARELTO [Concomitant]
     Dosage: 10 MG, UNK

REACTIONS (4)
  - Pain [Unknown]
  - Dehydration [Recovering/Resolving]
  - Oral discomfort [Recovering/Resolving]
  - Drug ineffective [Unknown]
